FAERS Safety Report 5948947-9 (Version None)
Quarter: 2008Q4

REPORT INFORMATION
  Report Type: 
  Country: None (occurrence: None)
  Receive Date: 20081111
  Receipt Date: 20081030
  Transmission Date: 20090506
  Serious: Yes (Other)
  Sender: FDA-Public Use
  Company Number: FR-PFIZER INC-2008074605

PATIENT
  Sex: Male
  Weight: 95 kg

DRUGS (8)
  1. LYRICA [Suspect]
     Indication: NEURALGIA
     Route: 048
     Dates: start: 20080720, end: 20080801
  2. LYRICA [Suspect]
     Indication: PARAESTHESIA
  3. TENORMIN [Concomitant]
     Route: 048
  4. LOXEN [Concomitant]
     Route: 048
  5. OLMESARTAN MEDOXOMIL [Concomitant]
     Route: 048
  6. PREVISCAN [Concomitant]
     Route: 048
  7. PERMIXON [Concomitant]
     Route: 048
  8. ACETAMINOPHEN [Concomitant]
     Route: 048

REACTIONS (3)
  - DIPLOPIA [None]
  - RETINAL VEIN OCCLUSION [None]
  - VISION BLURRED [None]
